FAERS Safety Report 9980994 (Version 2)
Quarter: 2014Q1

REPORT INFORMATION
  Report Type: Spontaneous
  Country: JP (occurrence: JP)
  Receive Date: 20140307
  Receipt Date: 20140307
  Transmission Date: 20141002
  Serious: Yes (Other)
  Sender: FDA-Public Use
  Company Number: JP-ELI_LILLY_AND_COMPANY-JP201401010360

PATIENT
  Age: 65 Year
  Sex: Female

DRUGS (3)
  1. GEMZAR [Suspect]
     Indication: BILE DUCT CANCER
     Dosage: UNK
     Route: 042
     Dates: start: 200808
  2. GEMZAR [Suspect]
     Dosage: 1032 MG, OTHER
     Route: 042
     Dates: start: 20140109
  3. DEXART [Concomitant]
     Dosage: 6.6 MG, UNK
     Dates: start: 20140109

REACTIONS (3)
  - Jaundice [Not Recovered/Not Resolved]
  - Liver function test abnormal [Not Recovered/Not Resolved]
  - Bone marrow failure [Unknown]
